FAERS Safety Report 5931870-3 (Version None)
Quarter: 2008Q4

REPORT INFORMATION
  Report Type: 
  Country: None (occurrence: None)
  Receive Date: 20081027
  Receipt Date: 20081015
  Transmission Date: 20090506
  Serious: Yes (Other)
  Sender: FDA-Public Use
  Company Number: JP-PFIZER INC-2008083470

PATIENT
  Sex: Female

DRUGS (8)
  1. SOLANAX [Suspect]
     Indication: ANXIETY DISORDER
     Route: 048
     Dates: start: 20071001
  2. MEILAX [Suspect]
     Route: 048
     Dates: start: 20040101
  3. TOFRANIL [Concomitant]
     Route: 048
     Dates: start: 20080219
  4. MYSLEE [Concomitant]
     Route: 048
  5. NAUZELIN [Concomitant]
  6. ALL OTHER THERAPEUTIC PRODUCTS [Concomitant]
     Route: 055
     Dates: start: 20080808, end: 20080822
  7. NUTRITIONAL SUPPLEMENT [Concomitant]
     Route: 048
  8. ANAFRANIL [Concomitant]
     Route: 048
     Dates: start: 20080909

REACTIONS (12)
  - CHEST PAIN [None]
  - COUGH [None]
  - DIZZINESS [None]
  - DYSGEUSIA [None]
  - EMOTIONAL DISORDER [None]
  - FATIGUE [None]
  - GAIT DISTURBANCE [None]
  - HYPERVENTILATION [None]
  - NASOPHARYNGITIS [None]
  - OVERDOSE [None]
  - PANIC ATTACK [None]
  - ROAD TRAFFIC ACCIDENT [None]
